FAERS Safety Report 22384216 (Version 1)
Quarter: 2023Q2

REPORT INFORMATION
  Report Type: Spontaneous
  Country: FR (occurrence: FR)
  Receive Date: 20230530
  Receipt Date: 20230530
  Transmission Date: 20230721
  Serious: Yes (Hospitalization, Other)
  Sender: FDA-Public Use
  Company Number: None

PATIENT
  Age: 71 Year
  Sex: Male
  Weight: 78 kg

DRUGS (6)
  1. KEYTRUDA [Suspect]
     Active Substance: PEMBROLIZUMAB
     Indication: Lung adenocarcinoma
     Dosage: 200 MG IN TOTAL
     Route: 042
     Dates: start: 20230419, end: 20230419
  2. CARBOPLATIN [Suspect]
     Active Substance: CARBOPLATIN
     Indication: Lung adenocarcinoma
     Dosage: 640 MG, 975 MG
     Route: 042
     Dates: start: 20230419, end: 20230419
  3. ALLOPURINOL [Suspect]
     Active Substance: ALLOPURINOL
     Indication: Gout
     Dosage: 1/DAY
     Route: 048
     Dates: start: 20230418, end: 20230506
  4. COLCHICINE [Suspect]
     Active Substance: COLCHICINE
     Indication: Gout
     Dosage: 0.5 MG/ 2 TWICE A DAY
     Route: 048
     Dates: start: 20230413, end: 20230418
  5. PEMETREXED [Suspect]
     Active Substance: PEMETREXED
     Indication: Acute pulmonary oedema
     Dosage: 975MG/DAY
     Route: 042
     Dates: start: 20230419, end: 20230419
  6. KINERET [Suspect]
     Active Substance: ANAKINRA
     Indication: Gout
     Dosage: 100MG/DAY
     Route: 058
     Dates: start: 20230417, end: 20230506

REACTIONS (2)
  - Neutropenia [Recovering/Resolving]
  - Thrombocytopenia [Recovering/Resolving]

NARRATIVE: CASE EVENT DATE: 20230427
